FAERS Safety Report 7645212-9 (Version None)
Quarter: 2011Q3

REPORT INFORMATION
  Report Type: 
  Country: None (occurrence: None)
  Receive Date: 20110729
  Receipt Date: 20110724
  Transmission Date: 20111222
  Serious: Yes (Death)
  Sender: FDA-Public Use
  Company Number: US-CELGENEUS-163-21880-11072706

PATIENT
  Age: 67 Year
  Sex: Male

DRUGS (14)
  1. DECADRON [Concomitant]
     Dosage: 1 MILLIGRAM
     Route: 065
     Dates: start: 20110101
  2. PRAVASTATIN [Concomitant]
     Route: 065
  3. PEPCID [Concomitant]
     Route: 065
     Dates: start: 20110101
  4. SERTRALINE HYDROCHLORIDE [Concomitant]
     Route: 065
  5. DECADRON [Concomitant]
     Dosage: 4 MILLIGRAM
     Route: 065
     Dates: start: 20110101
  6. EVEROLIMUS [Concomitant]
     Route: 065
     Dates: start: 20110301, end: 20110601
  7. FAMOTIDINE [Concomitant]
     Route: 065
  8. VARDENAFIL HYDROCHLORIDE (LEVITRA) [Concomitant]
     Route: 065
  9. NOVOLOG [Concomitant]
     Route: 065
  10. OMEPRAZOLE [Concomitant]
     Route: 065
  11. LANTUS [Concomitant]
     Route: 065
  12. ASPIRIN [Concomitant]
     Route: 065
  13. REVLIMID [Suspect]
     Dosage: 10 MILLIGRAM
     Route: 048
     Dates: start: 20110106, end: 20110125
  14. ROBAXIN [Concomitant]
     Route: 065

REACTIONS (2)
  - RASH [None]
  - DEATH [None]
